FAERS Safety Report 7964562-X (Version None)
Quarter: 2011Q4

REPORT INFORMATION
  Report Type: 
  Country: None (occurrence: None)
  Receive Date: 20111205
  Receipt Date: 20111205
  Transmission Date: 20120403
  Serious: No
  Sender: FDA-Public Use
  Company Number: None

PATIENT
  Sex: Male
  Weight: 113 kg

DRUGS (2)
  1. RISPERIDONE [Suspect]
     Indication: CONVULSION
  2. RISPERIDONE [Suspect]
     Indication: AUTISM
     Dates: start: 20081008, end: 20090121

REACTIONS (5)
  - ABNORMAL BEHAVIOUR [None]
  - EMOTIONAL DISORDER [None]
  - AGGRESSION [None]
  - MOOD ALTERED [None]
  - CONDITION AGGRAVATED [None]
